FAERS Safety Report 13376298 (Version 1)
Quarter: 2017Q1

REPORT INFORMATION
  Report Type: Spontaneous
  Country: US (occurrence: US)
  Receive Date: 20170327
  Receipt Date: 20170327
  Transmission Date: 20170429
  Serious: Yes (Hospitalization)
  Sender: FDA-Public Use
  Company Number: None

PATIENT
  Age: 51 Year
  Sex: Male

DRUGS (3)
  1. AMLODIPINE [Concomitant]
     Active Substance: AMLODIPINE BESYLATE
  2. NADOLOL. [Concomitant]
     Active Substance: NADOLOL
  3. TACROLIMUS 1MG CAPSULE [Suspect]
     Active Substance: TACROLIMUS
     Indication: LIVER TRANSPLANT
     Dosage: FREQUENCY - QAM AND QPM
     Route: 048
     Dates: start: 20150328

REACTIONS (2)
  - Brain tumour operation [None]
  - Seizure [None]

NARRATIVE: CASE EVENT DATE: 20170323
